FAERS Safety Report 7645514-6 (Version None)
Quarter: 2011Q3

REPORT INFORMATION
  Report Type: 
  Country: None (occurrence: None)
  Receive Date: 20110729
  Receipt Date: 20110720
  Transmission Date: 20111222
  Serious: Yes (Death, Other)
  Sender: FDA-Public Use
  Company Number: DE-GENZYME-THYM-1002629

PATIENT
  Age: 21 Year
  Sex: Male

DRUGS (5)
  1. MORPHINE [Concomitant]
     Indication: ANALGESIC THERAPY
     Dosage: 20 MG, UNK
     Route: 042
  2. METOCLOPRAMIDE [Concomitant]
     Indication: ANALGESIC THERAPY
     Dosage: 10 MG, UNK
     Route: 042
  3. MIDAZOLAM HCL [Concomitant]
     Indication: SEDATIVE THERAPY
     Dosage: 7.5 MG, UNK
  4. FLUDARA [Suspect]
     Indication: BONE MARROW CONDITIONING REGIMEN
  5. THYMOGLOBULIN [Suspect]
     Indication: BONE MARROW CONDITIONING REGIMEN

REACTIONS (6)
  - CHLOROMA [None]
  - CARDIAC TAMPONADE [None]
  - PERICARDIAL EFFUSION [None]
  - CYTOMEGALOVIRUS INFECTION [None]
  - ACUTE GRAFT VERSUS HOST DISEASE [None]
  - ACUTE MYELOID LEUKAEMIA RECURRENT [None]
